FAERS Safety Report 4567295-5 (Version None)
Quarter: 2005Q1

REPORT INFORMATION
  Report Type: 
  Country: None (occurrence: None)
  Receive Date: 20050127
  Receipt Date: 20050114
  Transmission Date: 20050727
  Serious: Yes (Hospitalization)
  Sender: FDA-Public Use
  Company Number: 2005014959

PATIENT
  Sex: Male
  Weight: 87.5442 kg

DRUGS (16)
  1. NEURONTIN [Suspect]
     Indication: BIPOLAR DISORDER
  2. GEODON [Suspect]
     Indication: ILL-DEFINED DISORDER
     Dosage: 120 MG ORAL
     Route: 048
     Dates: start: 20030101
  3. GABAPENTIN [Suspect]
     Indication: BIPOLAR DISORDER
  4. BUSPIRONE HCL [Suspect]
     Indication: ANXIETY DISORDER
  5. OLANZAPINE [Suspect]
     Indication: ANXIETY DISORDER
     Dates: end: 20030101
  6. ALL OTHER NON-THERAPEUTIC PRODUCTS [Suspect]
     Indication: ILL-DEFINED DISORDER
  7. DIPHENHYDRAMINE HCL [Concomitant]
  8. CLOMIPRAMINE HCL [Concomitant]
  9. PANTOPRAZOLE [Concomitant]
  10. METOPROLOL TARTRATE [Concomitant]
  11. AMLODIPINE BESYLATE [Concomitant]
  12. VALSARTAN                (VALSARTAN) [Concomitant]
  13. PRAVASTATIN SODIUM [Concomitant]
  14. TRIAMCINOLONE [Concomitant]
  15. CICLOPIROX OLAMINE                   (CICLOPIROX OLAMINE) [Concomitant]
  16. MICONAZOLE [Concomitant]

REACTIONS (13)
  - ANXIETY [None]
  - BALANCE DISORDER [None]
  - BIPOLAR DISORDER [None]
  - BLOOD POTASSIUM INCREASED [None]
  - BLOOD PRESSURE INCREASED [None]
  - BRONCHITIS [None]
  - CONDITION AGGRAVATED [None]
  - CRYING [None]
  - DEPRESSION [None]
  - DIFFICULTY IN WALKING [None]
  - DIZZINESS [None]
  - FATIGUE [None]
  - MUSCLE SPASMS [None]
